FAERS Safety Report 20043067 (Version 1)
Quarter: 2021Q4

REPORT INFORMATION
  Report Type: Other
  Country: TW (occurrence: TW)
  Receive Date: 20211108
  Receipt Date: 20211108
  Transmission Date: 20220303
  Serious: Yes (Other)
  Sender: FDA-Public Use
  Company Number: TW-002147023-NVSC2021TW247746

PATIENT
  Age: 75 Year
  Sex: Male

DRUGS (1)
  1. LUCENTIS [Suspect]
     Active Substance: RANIBIZUMAB
     Indication: Neovascular age-related macular degeneration
     Dosage: 0.5 MG, PRN
     Route: 047
     Dates: start: 20200810

REACTIONS (4)
  - Macular cyst [Unknown]
  - Macular oedema [Unknown]
  - Epiretinal membrane [Unknown]
  - Visual impairment [Unknown]

NARRATIVE: CASE EVENT DATE: 20200824
